FAERS Safety Report 14345238 (Version 1)
Quarter: 2018Q1

REPORT INFORMATION
  Report Type: Spontaneous
  Country: US (occurrence: US)
  Receive Date: 20180103
  Receipt Date: 20180103
  Transmission Date: 20180509
  Serious: No
  Sender: FDA-Public Use
  Company Number: US-INGENUS PHARMACEUTICALS NJ, LLC-ING201710-000468

PATIENT
  Sex: Female

DRUGS (1)
  1. CYPROHEPTADINE HYDROCHLORIDE TABLETS USP [Suspect]
     Active Substance: CYPROHEPTADINE HYDROCHLORIDE
     Indication: WEIGHT DECREASED
     Dosage: FOR A YEAR

REACTIONS (1)
  - Product use in unapproved indication [Unknown]
